FAERS Safety Report 16141607 (Version 1)
Quarter: 2019Q2

REPORT INFORMATION
  Report Type: Spontaneous
  Country: US (occurrence: US)
  Receive Date: 20190327
  Receipt Date: 20190327
  Transmission Date: 20190711
  Serious: Yes (Other)
  Sender: FDA-Public Use
  Company Number: None

PATIENT
  Age: 36 Year
  Sex: Male
  Weight: 67.5 kg

DRUGS (2)
  1. LEOPARD MIRACLE HONEY [Suspect]
     Active Substance: DIETARY SUPPLEMENT
     Indication: NUTRITIONAL SUPPLEMENTATION
     Dosage: ?          QUANTITY:180 GRAMS;?
     Route: 048
     Dates: start: 20190116, end: 20190326
  2. SILDENAFIL. [Suspect]
     Active Substance: SILDENAFIL

REACTIONS (7)
  - Paraesthesia [None]
  - Vision blurred [None]
  - Recalled product administered [None]
  - Drug interaction [None]
  - Product formulation issue [None]
  - Gait disturbance [None]
  - Hypoaesthesia [None]
